FAERS Safety Report 14455915 (Version 1)
Quarter: 2018Q1

REPORT INFORMATION
  Report Type: Report from Study
  Country: JP (occurrence: JP)
  Receive Date: 20180130
  Receipt Date: 20180130
  Transmission Date: 20180509
  Serious: Yes (Hospitalization, Other)
  Sender: FDA-Public Use
  Company Number: JP-ROCHE-1760991

PATIENT
  Age: 80 Year
  Sex: Male

DRUGS (2)
  1. PEMETREXED SODIUM HYDRATE [Suspect]
     Active Substance: PEMETREXED
     Indication: NON-SMALL CELL LUNG CANCER
     Route: 041
     Dates: start: 20160205
  2. BEVACIZUMAB. [Suspect]
     Active Substance: BEVACIZUMAB
     Indication: NON-SMALL CELL LUNG CANCER
     Dosage: DOSAGE IS UNCERTAIN
     Route: 041
     Dates: start: 20160205

REACTIONS (7)
  - Proteinuria [Unknown]
  - Lower gastrointestinal haemorrhage [Recovering/Resolving]
  - Hypokalaemia [Unknown]
  - Anaemia [Unknown]
  - Hyponatraemia [Unknown]
  - Epistaxis [Unknown]
  - Platelet count decreased [Unknown]

NARRATIVE: CASE EVENT DATE: 20160511
